FAERS Safety Report 7825621-5 (Version None)
Quarter: 2011Q4

REPORT INFORMATION
  Report Type: 
  Country: None (occurrence: None)
  Receive Date: 20111019
  Receipt Date: 20111011
  Transmission Date: 20120403
  Serious: Yes (Other)
  Sender: FDA-Public Use
  Company Number: PHHY2011GB89572

PATIENT
  Age: 39 Year
  Sex: Female

DRUGS (6)
  1. CITALOPRAM HYDROBROMIDE [Concomitant]
     Indication: DEPRESSION
     Dosage: 20 MG, UNK
  2. LORATADINE [Suspect]
     Indication: RHINITIS
     Dosage: 10 MG, QD
  3. VENTOLIN [Concomitant]
     Dosage: 1000 UG, UNK
  4. AMITRIPTYLINE HCL [Suspect]
     Indication: HEADACHE
     Dosage: 50 MG, QD
  5. BECLOMETHASONE AQUEOUS [Concomitant]
     Dosage: UNK
  6. GLANDOSANE [Concomitant]
     Dosage: UNK

REACTIONS (2)
  - ABORTION SPONTANEOUS [None]
  - MATERNAL EXPOSURE DURING PREGNANCY [None]
